FAERS Safety Report 9136181 (Version 2)
Quarter: 2013Q1

REPORT INFORMATION
  Report Type: Spontaneous
  Country: US (occurrence: US)
  Receive Date: 20130304
  Receipt Date: 20130325
  Transmission Date: 20140127
  Serious: Yes (Other)
  Sender: FDA-Public Use
  Company Number: US-GLAXOSMITHKLINE-A1013250A

PATIENT
  Age: 62 Year
  Sex: Male
  Weight: 117 kg

DRUGS (6)
  1. VOTRIENT [Suspect]
     Indication: RENAL CELL CARCINOMA
     Dosage: 600MG PER DAY
     Route: 048
     Dates: start: 201208, end: 201301
  2. LORATADINE [Concomitant]
  3. GLIPIZIDE [Concomitant]
  4. LISINOPRIL [Concomitant]
  5. PAROXETINE [Concomitant]
  6. PRAVASTATIN [Concomitant]

REACTIONS (4)
  - Osteomyelitis [Not Recovered/Not Resolved]
  - Mycobacterial infection [Not Recovered/Not Resolved]
  - Surgery [Not Recovered/Not Resolved]
  - Biopsy [Unknown]
